FAERS Safety Report 8613641-2 (Version None)
Quarter: 2012Q3

REPORT INFORMATION
  Report Type: 
  Country: None (occurrence: None)
  Receive Date: 20120823
  Receipt Date: 20120814
  Transmission Date: 20120928
  Serious: Yes (Hospitalization)
  Sender: FDA-Public Use
  Company Number: BE-AMGEN-BELCT2012052715

PATIENT
  Age: 31 Year
  Sex: Female

DRUGS (2)
  1. ETANERCEPT [Suspect]
     Indication: PSORIATIC ARTHROPATHY
     Dosage: 25 MG, 2 TIMES/WK
     Route: 058
     Dates: start: 20050819
  2. BISOPROLOL/HYDROCHLOROTHIAZIDE ARROW [Concomitant]
     Dosage: UNK
     Route: 048
     Dates: start: 20060112, end: 20070101

REACTIONS (2)
  - DIPLOPIA [None]
  - VERTIGO [None]
